FAERS Safety Report 20506729 (Version 1)
Quarter: 2022Q1

REPORT INFORMATION
  Report Type: Spontaneous
  Country: US (occurrence: None)
  Receive Date: 20220222
  Receipt Date: 20220222
  Transmission Date: 20220423
  Serious: Yes (Death)
  Sender: FDA-Public Use
  Company Number: None

PATIENT
  Age: 96 Year
  Sex: Female
  Weight: 46.8 kg

DRUGS (8)
  1. VERZENIO [Suspect]
     Active Substance: ABEMACICLIB
     Indication: Breast cancer female
     Dosage: FREQUENCY : TWICE A DAY;?
     Route: 048
  2. NIFEdipine ER Oral Tablet Extended [Concomitant]
  3. Omeprazole Oral Tablet Delayed Rele [Concomitant]
  4. Accupril Oral Tablet 20 MG [Concomitant]
  5. Oxazepam Oral Capsule 10 MG [Concomitant]
  6. Anastrozole Oral Tablet 1 MG [Concomitant]
  7. Eliquis Oral Tablet 2.5 MG [Concomitant]
  8. Mirtazapine Oral Tablet 15 MG [Concomitant]

REACTIONS (1)
  - Death [None]

NARRATIVE: CASE EVENT DATE: 20220214
